FAERS Safety Report 9618850 (Version 2)
Quarter: 2013Q4

REPORT INFORMATION
  Report Type: Report from Study
  Country: CA (occurrence: CA)
  Receive Date: 20131014
  Receipt Date: 20131018
  Transmission Date: 20140711
  Serious: No
  Sender: FDA-Public Use
  Company Number: CA-ROCHE-1287799

PATIENT
  Age: 48 Year
  Sex: Female
  Weight: 86.2 kg

DRUGS (11)
  1. RITUXAN [Suspect]
     Indication: RHEUMATOID ARTHRITIS
     Dosage: FREQUENCY: DAY 1 + 15
     Route: 042
     Dates: start: 20130927
  2. AVELOX [Suspect]
     Indication: FOLLICULITIS
     Dosage: 21 DAYS
     Route: 065
     Dates: end: 20131008
  3. METHYLPREDNISOLONE [Concomitant]
     Route: 042
     Dates: start: 20130927
  4. DIPHENHYDRAMINE HCL [Concomitant]
     Route: 048
     Dates: start: 20130927
  5. ACETAMINOPHEN [Concomitant]
     Route: 048
     Dates: start: 20130927
  6. VITAMIN C [Concomitant]
  7. RANITIDINE [Concomitant]
  8. PANTOPRAZOLE [Concomitant]
  9. ROACCUTANE [Concomitant]
  10. FOLIC ACID [Concomitant]
  11. METHOTREXATE [Concomitant]

REACTIONS (1)
  - Fungal infection [Recovering/Resolving]
